FAERS Safety Report 5957769-4 (Version None)
Quarter: 2008Q4

REPORT INFORMATION
  Report Type: 
  Country: None (occurrence: None)
  Receive Date: 20081112
  Receipt Date: 20081031
  Transmission Date: 20090506
  Serious: Yes (Hospitalization)
  Sender: FDA-Public Use
  Company Number: 1-16806111/MED-08201

PATIENT
  Age: 69 Year
  Sex: Female
  Weight: 106.5953 kg

DRUGS (7)
  1. BACTRIM [Suspect]
     Indication: CELLULITIS
     Dosage: ORAL
     Route: 048
     Dates: start: 20080801
  2. AVONEX [Concomitant]
  3. HUMALOG [Concomitant]
  4. BACLOFEN [Concomitant]
  5. MIRAPEX [Concomitant]
  6. AVAPRO [Concomitant]
  7. PROTONIX [Concomitant]

REACTIONS (2)
  - BRONCHITIS [None]
  - TREMOR [None]
